FAERS Safety Report 8978161 (Version 1)
Quarter: 2012Q4

REPORT INFORMATION
  Report Type: 
  Country: FR (occurrence: FR)
  Receive Date: 20121220
  Receipt Date: 20121220
  Transmission Date: 20130627
  Serious: Yes (Hospitalization)
  Sender: FDA-Public Use
  Company Number: FR-SANOFI-AVENTIS-2012SA092622

PATIENT
  Age: 84 Year
  Sex: Male

DRUGS (3)
  1. ASPEGIC [Suspect]
     Indication: DRUG USE FOR UNKNOWN INDICATION
     Route: 048
     Dates: end: 20120711
  2. PLAVIX [Suspect]
     Indication: DRUG USE FOR UNKNOWN INDICATION
     Route: 048
     Dates: end: 20120711
  3. AMIODARONE [Concomitant]
     Route: 048
     Dates: end: 20120711

REACTIONS (1)
  - Anaemia [Not Recovered/Not Resolved]
